FAERS Safety Report 8041237-2 (Version None)
Quarter: 2012Q1

REPORT INFORMATION
  Report Type: 
  Country: None (occurrence: None)
  Receive Date: 20120109
  Receipt Date: 20120104
  Transmission Date: 20120608
  Serious: No
  Sender: FDA-Public Use
  Company Number: ACO_28365_2011

PATIENT
  Age: 54 Year
  Sex: Female

DRUGS (5)
  1. LISINOPRIL/HYDROCHLOROTHIAZIDE (HYDROCHLOROTHIAZIDE, LISINOPRIL) [Concomitant]
  2. BACLOFEN [Concomitant]
  3. AMPYRA [Suspect]
     Indication: GAIT DISTURBANCE
     Dosage: 10 MG, QD
     Dates: start: 20111101, end: 20110101
  4. RITALIN [Concomitant]
  5. ALPRAZOLAM [Concomitant]

REACTIONS (4)
  - FEELING ABNORMAL [None]
  - GAIT DISTURBANCE [None]
  - SOMNOLENCE [None]
  - INAPPROPRIATE SCHEDULE OF DRUG ADMINISTRATION [None]
